FAERS Safety Report 24952734 (Version 1)
Quarter: 2025Q1

REPORT INFORMATION
  Report Type: Spontaneous
  Country: CA (occurrence: CA)
  Receive Date: 20250211
  Receipt Date: 20250211
  Transmission Date: 20250408
  Serious: Yes (Other)
  Sender: AUROBINDO
  Company Number: CA-AUROBINDO-AUR-APL-2025-006602

PATIENT
  Age: 27 Year
  Sex: Female
  Weight: 94 kg

DRUGS (9)
  1. DULOXETINE [Suspect]
     Active Substance: DULOXETINE
     Indication: Product used for unknown indication
     Route: 065
  2. CONCERTA [Suspect]
     Active Substance: METHYLPHENIDATE HYDROCHLORIDE
     Indication: Product used for unknown indication
     Route: 065
  3. DAYVIGO [Suspect]
     Active Substance: LEMBOREXANT
     Indication: Product used for unknown indication
     Route: 065
  4. HULIO [Suspect]
     Active Substance: ADALIMUMAB-FKJP
     Indication: Ankylosing spondylitis
     Route: 058
  5. HULIO [Suspect]
     Active Substance: ADALIMUMAB-FKJP
     Route: 058
  6. HULIO [Suspect]
     Active Substance: ADALIMUMAB-FKJP
     Route: 058
  7. HULIO [Suspect]
     Active Substance: ADALIMUMAB-FKJP
     Route: 058
  8. SEROQUEL [Concomitant]
     Active Substance: QUETIAPINE FUMARATE
     Indication: Product used for unknown indication
     Route: 065
  9. VARICELLA-ZOSTER VIRUS STRAIN OKA/MERCK LIVE ANTIGEN [Concomitant]
     Active Substance: VARICELLA-ZOSTER VIRUS STRAIN OKA/MERCK LIVE ANTIGEN
     Indication: Product used for unknown indication
     Route: 065

REACTIONS (18)
  - Pyrexia [Unknown]
  - Concussion [Unknown]
  - Cough [Unknown]
  - Discomfort [Unknown]
  - Fatigue [Unknown]
  - Head injury [Unknown]
  - Headache [Unknown]
  - Hypoaesthesia [Unknown]
  - Loss of consciousness [Unknown]
  - Mania [Unknown]
  - Nasal congestion [Unknown]
  - Nasopharyngitis [Unknown]
  - Nausea [Unknown]
  - Oropharyngeal pain [Unknown]
  - Pain [Unknown]
  - Pain in extremity [Unknown]
  - Paraesthesia [Unknown]
  - Circumstance or information capable of leading to medication error [Unknown]
